FAERS Safety Report 4404941-0 (Version None)
Quarter: 2004Q3

REPORT INFORMATION
  Report Type: 
  Country: None (occurrence: None)
  Receive Date: 20040715
  Receipt Date: 20040630
  Transmission Date: 20050211
  Serious: Yes (Hospitalization)
  Sender: FDA-Public Use
  Company Number: 190758

PATIENT
  Age: 29 Year
  Sex: Male
  Weight: 68.0396 kg

DRUGS (6)
  1. AVONEX [Suspect]
     Indication: MULTIPLE SCLEROSIS
     Dosage: 30 MCG QW IM
     Route: 030
     Dates: start: 19970101, end: 20010724
  2. AVONEX [Suspect]
     Indication: MULTIPLE SCLEROSIS
     Dosage: 30 MCG QW IM
     Route: 030
     Dates: start: 20010901
  3. MITOXANTRONE [Concomitant]
  4. WELLBUTRIN [Concomitant]
  5. VIVACTIL [Concomitant]
  6. CYTOMEL [Concomitant]

REACTIONS (16)
  - AKINESIA [None]
  - BRAIN DAMAGE [None]
  - CEREBRAL HAEMORRHAGE [None]
  - COGNITIVE DISORDER [None]
  - CONFUSIONAL STATE [None]
  - CONVULSION [None]
  - CSF GLUCOSE DECREASED [None]
  - CSF PROTEIN INCREASED [None]
  - CSF WHITE BLOOD CELL COUNT INCREASED [None]
  - DEPRESSION [None]
  - DISTURBANCE IN ATTENTION [None]
  - ENCEPHALOPATHY [None]
  - FLAT AFFECT [None]
  - MULTIPLE SCLEROSIS [None]
  - PSYCHOMOTOR RETARDATION [None]
  - RED BLOOD CELLS CSF POSITIVE [None]
